FAERS Safety Report 10648641 (Version 4)
Quarter: 2015Q1

REPORT INFORMATION
  Report Type: Spontaneous
  Country: CN (occurrence: CN)
  Receive Date: 20141212
  Receipt Date: 20150115
  Transmission Date: 20150720
  Serious: Yes (Death, Other)
  Sender: FDA-Public Use
  Company Number: CN-SA-2014SA167371

PATIENT
  Age: 78 Year
  Sex: Female

DRUGS (14)
  1. ASPIRIN. [Concomitant]
     Active Substance: ASPIRIN
     Route: 048
     Dates: end: 20141119
  2. DOPAMINE HYDROCHLORIDE. [Concomitant]
     Active Substance: DOPAMINE HYDROCHLORIDE
     Route: 042
     Dates: end: 20141119
  3. GLYCERYL TRINITRATE [Concomitant]
     Active Substance: NITROGLYCERIN
     Route: 048
     Dates: end: 20141119
  4. SODIUM BICARBONATE. [Concomitant]
     Active Substance: SODIUM BICARBONATE
     Route: 042
     Dates: end: 20141119
  5. CLEXANE [Suspect]
     Active Substance: ENOXAPARIN SODIUM
     Indication: MYOCARDIAL INFARCTION
     Route: 058
     Dates: start: 20141119, end: 20141119
  6. DEXAMETHASONE SODIUM PHOSPHATE. [Concomitant]
     Active Substance: DEXAMETHASONE SODIUM PHOSPHATE
     Route: 042
     Dates: end: 20141119
  7. BENAZEPRIL HYDROCHLORIDE. [Concomitant]
     Active Substance: BENAZEPRIL HYDROCHLORIDE
     Indication: CHEST DISCOMFORT
     Route: 048
     Dates: end: 20141119
  8. CLOPIDOGREL SULFATE [Concomitant]
     Active Substance: CLOPIDOGREL BISULFATE
     Route: 048
     Dates: end: 20141119
  9. ADRENALINE [Concomitant]
     Active Substance: EPINEPHRINE
     Route: 058
     Dates: end: 20141119
  10. METFORMIN HYDROCHLORIDE. [Concomitant]
     Active Substance: METFORMIN HYDROCHLORIDE
     Indication: DIABETES MELLITUS
     Dosage: START DATE:ONE YEAR AGO
     Route: 048
     Dates: end: 20141119
  11. ATORVASTATIN CALCIUM. [Concomitant]
     Active Substance: ATORVASTATIN CALCIUM
     Route: 048
     Dates: end: 20141119
  12. ISOSORBIDE [Concomitant]
     Active Substance: ISOSORBIDE
     Dosage: FORM: IV GTT
     Dates: end: 20141119
  13. ATROPINE SULFATE. [Concomitant]
     Active Substance: ATROPINE SULFATE
     Route: 042
     Dates: end: 20141119
  14. SODIUM CHLORIDE. [Concomitant]
     Active Substance: SODIUM CHLORIDE
     Route: 042
     Dates: end: 20141119

REACTIONS (5)
  - Dyspnoea [Unknown]
  - Myocardial infarction [Fatal]
  - Respiratory arrest [Unknown]
  - Shock [Unknown]
  - Condition aggravated [Fatal]

NARRATIVE: CASE EVENT DATE: 20141119
